FAERS Safety Report 7706020-3 (Version None)
Quarter: 2011Q3

REPORT INFORMATION
  Report Type: 
  Country: None (occurrence: None)
  Receive Date: 20110818
  Receipt Date: 20110808
  Transmission Date: 20111222
  Serious: Yes (Other)
  Sender: FDA-Public Use
  Company Number: LEO-2011-00655

PATIENT
  Sex: Male
  Weight: 81 kg

DRUGS (3)
  1. ONE-ALPHA (ALFACALCIDOL) [Concomitant]
  2. EPREX [Concomitant]
  3. INNOHEP [Suspect]
     Indication: HAEMODIALYSIS
     Dosage: 1071.4286 IU (2500 IU, 3 IN 1 WK), HEMODIALYSIS
     Route: 010
     Dates: start: 20090806, end: 20101107

REACTIONS (1)
  - THROMBOSIS IN DEVICE [None]
